FAERS Safety Report 18267255 (Version 1)
Quarter: 2020Q3

REPORT INFORMATION
  Report Type: Spontaneous
  Country: IT (occurrence: IT)
  Receive Date: 20200915
  Receipt Date: 20200915
  Transmission Date: 20201103
  Serious: Yes (Hospitalization, Other)
  Sender: FDA-Public Use
  Company Number: IT-AMGEN-ITASP2020146587

PATIENT

DRUGS (8)
  1. CYCLOPHOSPHAMIDE. [Concomitant]
     Active Substance: CYCLOPHOSPHAMIDE
     Indication: BREAST CANCER STAGE II
     Dosage: 6 GRAM PER SQUARE METRE
  2. CYCLOPHOSPHAMIDE. [Concomitant]
     Active Substance: CYCLOPHOSPHAMIDE
     Indication: BREAST CANCER METASTATIC
  3. MELPHALAN. [Concomitant]
     Active Substance: MELPHALAN
     Indication: BREAST CANCER STAGE II
     Dosage: 160 MILLIGRAM/SQ. METER
  4. MELPHALAN. [Concomitant]
     Active Substance: MELPHALAN
     Indication: BREAST CANCER METASTATIC
  5. FILGRASTIM [Suspect]
     Active Substance: FILGRASTIM
     Indication: PROPHYLAXIS
  6. CYCLOPHOSPHAMIDE. [Concomitant]
     Active Substance: CYCLOPHOSPHAMIDE
     Indication: NON-HODGKIN^S LYMPHOMA
  7. FILGRASTIM [Suspect]
     Active Substance: FILGRASTIM
     Indication: HAEMATOPOIETIC STEM CELL MOBILISATION
     Dosage: UNK UNK, QD  (5 TO 6 MG/KG/D)
     Route: 058
  8. MELPHALAN. [Concomitant]
     Active Substance: MELPHALAN
     Indication: NON-HODGKIN^S LYMPHOMA

REACTIONS (5)
  - Thrombocytopenia [Unknown]
  - Febrile neutropenia [Unknown]
  - Bone pain [Unknown]
  - Haemoglobin decreased [Unknown]
  - Neutropenia [Unknown]
